FAERS Safety Report 7793627-0 (Version None)
Quarter: 2011Q4

REPORT INFORMATION
  Report Type: 
  Country: None (occurrence: None)
  Receive Date: 20111003
  Receipt Date: 20110328
  Transmission Date: 20120403
  Serious: No
  Sender: FDA-Public Use
  Company Number: US-BAYER-2011-026957

PATIENT
  Age: 54 Year
  Sex: Male

DRUGS (15)
  1. LEVITRA [Suspect]
     Indication: ERECTILE DYSFUNCTION
     Dosage: 10 MG, UNK
     Route: 048
  2. ASACOL [Concomitant]
     Dosage: 800 MG, UNK
     Route: 048
  3. HYDROCODONE [Concomitant]
     Dosage: 7.5 MG, QID
     Route: 048
  4. BELLADONNA ALKALOIDS [Concomitant]
     Dosage: UNK UNK, PRN
  5. WARFARIN SODIUM [Concomitant]
     Dosage: 5 MG, QD
     Route: 048
  6. LEVITRA [Suspect]
     Dosage: 20 MG, UNK
     Route: 048
     Dates: start: 20110101, end: 20110327
  7. LEVOTHYROXINE SODIUM [Concomitant]
     Dosage: 0.088 MG, QD
     Route: 048
  8. METFORMIN HCL [Concomitant]
     Indication: DIABETES MELLITUS
     Dosage: 1000 MG, BID
     Route: 048
  9. PARLODEL [Concomitant]
     Dosage: 5 MG, BID
     Route: 048
  10. ZOCOR [Concomitant]
     Indication: BLOOD CHOLESTEROL INCREASED
     Dosage: 80 MG, QD
     Route: 048
  11. LISINOPRIL [Concomitant]
     Indication: HYPERTENSION
     Dosage: 20 MG, QD
     Route: 048
  12. BACLOFEN [Concomitant]
     Dosage: 20 MG, TID
     Route: 048
  13. CLONAZEPAM [Concomitant]
     Dosage: 2 MG, PRN
     Route: 048
  14. FENOFIBRATE [Concomitant]
     Indication: BLOOD CHOLESTEROL INCREASED
     Dosage: 160 MG, HS
     Route: 048
  15. LORAZEPAM [Concomitant]
     Indication: SLEEP DISORDER
     Dosage: 30 MG, HS
     Route: 048

REACTIONS (1)
  - DRUG INEFFECTIVE [None]
